FAERS Safety Report 5841902-9 (Version None)
Quarter: 2008Q3

REPORT INFORMATION
  Report Type: 
  Country: None (occurrence: None)
  Receive Date: 20080811
  Receipt Date: 20080811
  Transmission Date: 20090109
  Serious: Yes (Death)
  Sender: FDA-Public Use
  Company Number: None

PATIENT
  Sex: Male
  Weight: 90 kg

DRUGS (2)
  1. ALDURAZYME [Suspect]
     Indication: MUCOPOLYSACCHARIDOSIS I
     Dosage: 1.74 MG ONCE IT
     Route: 037
     Dates: start: 20080124, end: 20080124
  2. DURAGESIC-50 [Suspect]
     Indication: SPINAL CORD COMPRESSION
     Dosage: ONE PATCH ONCE TRANSDERMAL
     Route: 062
     Dates: start: 20080125, end: 20080126

REACTIONS (4)
  - CARDIAC VALVE DISEASE [None]
  - CONGESTIVE CARDIOMYOPATHY [None]
  - CORONARY ARTERY STENOSIS [None]
  - MYOCARDIAL FIBROSIS [None]
